FAERS Safety Report 7515722-3 (Version None)
Quarter: 2011Q2

REPORT INFORMATION
  Report Type: 
  Country: None (occurrence: None)
  Receive Date: 20110601
  Receipt Date: 20100723
  Transmission Date: 20111010
  Serious: Yes (Other)
  Sender: FDA-Public Use
  Company Number: US-PFIZER INC-2010055293

PATIENT
  Sex: Female

DRUGS (6)
  1. CIPROFLOXACIN [Concomitant]
     Indication: BRONCHITIS
     Dosage: UNK
     Dates: start: 20060101, end: 20090101
  2. SPIRIVA [Concomitant]
     Indication: CHRONIC OBSTRUCTIVE PULMONARY DISEASE
     Dosage: UNK
     Dates: start: 20060101
  3. ADVAIR DISKUS 100/50 [Concomitant]
     Indication: CHRONIC OBSTRUCTIVE PULMONARY DISEASE
     Dosage: UNK
     Dates: start: 20030101
  4. CHANTIX [Suspect]
     Indication: SMOKING CESSATION THERAPY
     Dosage: STARTER PACK AND 1MG MAINTENANCE PACK
     Route: 048
     Dates: start: 20070718, end: 20071001
  5. NOTUSS [Concomitant]
     Indication: ASTHMA
     Dosage: UNK
     Dates: start: 20040101, end: 20090101
  6. NOTUSS [Concomitant]
     Indication: BRONCHITIS

REACTIONS (3)
  - DEPRESSION [None]
  - ANXIETY [None]
  - AMNESIA [None]
